FAERS Safety Report 4869946-4 (Version None)
Quarter: 2005Q4

REPORT INFORMATION
  Report Type: 
  Country: None (occurrence: None)
  Receive Date: 20051223
  Receipt Date: 20041119
  Transmission Date: 20060501
  Serious: Yes (Hospitalization)
  Sender: FDA-Public Use
  Company Number: 2004BI000101

PATIENT
  Age: 62 Year
  Sex: Female

DRUGS (17)
  1. AVONEX [Suspect]
     Indication: MULTIPLE SCLEROSIS
     Dosage: 30 UG; QW; IM
     Route: 030
     Dates: start: 19990621, end: 20030901
  2. AVONEX [Suspect]
     Indication: MULTIPLE SCLEROSIS
     Dosage: 30 UG; QW; IM
     Route: 030
     Dates: start: 20031001
  3. COUMADIN [Concomitant]
  4. CARTIA XT [Concomitant]
  5. NABUMETONE [Concomitant]
  6. LEXAPRO [Concomitant]
  7. LANOXIN [Concomitant]
  8. ALTACE [Concomitant]
  9. DIOVAN [Concomitant]
  10. TIAZAC [Concomitant]
  11. PREMARIN [Concomitant]
  12. EFFEXOR [Concomitant]
  13. HYOSCYAMINE [Concomitant]
  14. RELAFEN [Concomitant]
  15. PROZAC [Concomitant]
  16. VIOXX [Concomitant]
  17. ATACAND [Concomitant]

REACTIONS (21)
  - ASTHENIA [None]
  - ATELECTASIS [None]
  - ATRIAL FIBRILLATION [None]
  - AZOTAEMIA [None]
  - BREAST CANCER FEMALE [None]
  - CARDIAC HYPERTROPHY [None]
  - CARDIOMEGALY [None]
  - DILATATION ATRIAL [None]
  - DILATATION VENTRICULAR [None]
  - DYSPNOEA [None]
  - EJECTION FRACTION DECREASED [None]
  - INTERNATIONAL NORMALISED RATIO INCREASED [None]
  - LOSS OF CONTROL OF LEGS [None]
  - LUNG INFILTRATION [None]
  - MYOCARDIAL INFARCTION [None]
  - PLEURAL EFFUSION [None]
  - PROGRESSIVE MULTIPLE SCLEROSIS [None]
  - PULMONARY HYPERTENSION [None]
  - PULMONARY VALVE INCOMPETENCE [None]
  - TRICUSPID VALVE INCOMPETENCE [None]
  - VENTRICULAR EXTRASYSTOLES [None]
